FAERS Safety Report 9627224 (Version 1)
Quarter: 2013Q4

REPORT INFORMATION
  Report Type: Not Available
  Country: US (occurrence: US)
  Receive Date: 20131016
  Receipt Date: 20131016
  Transmission Date: 20140711
  Serious: Yes (Other)
  Sender: FDA-Public Use
  Company Number: US-LUNDBECK-DKLU1084388

PATIENT
  Sex: Female
  Weight: 81.6 kg

DRUGS (1)
  1. SABRIL (TABLET) [Suspect]
     Indication: CONVULSION
     Route: 048

REACTIONS (3)
  - Vision blurred [Unknown]
  - Diplopia [Unknown]
  - Tremor [Unknown]
